FAERS Safety Report 5404399-9 (Version None)
Quarter: 2007Q3

REPORT INFORMATION
  Report Type: 
  Country: None (occurrence: None)
  Receive Date: 20070802
  Receipt Date: 20070726
  Transmission Date: 20080115
  Serious: Yes (Other)
  Sender: FDA-Public Use
  Company Number: KR-PFIZER INC-2007035103

PATIENT
  Sex: Male

DRUGS (3)
  1. ZOLOFT [Suspect]
     Indication: INSOMNIA
     Route: 048
  2. HYPNOTICS AND SEDATIVES [Concomitant]
     Route: 048
  3. HERBAL PREPARATION [Concomitant]
     Route: 048

REACTIONS (4)
  - AMNESIA [None]
  - APALLIC SYNDROME [None]
  - GAIT DISTURBANCE [None]
  - INSOMNIA [None]
